FAERS Safety Report 5065343-X (Version None)
Quarter: 2006Q3

REPORT INFORMATION
  Report Type: 
  Country: None (occurrence: None)
  Receive Date: 20060726
  Receipt Date: 20060707
  Transmission Date: 20061208
  Serious: Yes (Other)
  Sender: FDA-Public Use
  Company Number: 227175

PATIENT
  Age: 47 Year
  Sex: Female
  Weight: 80.3 kg

DRUGS (2)
  1. AVASTIN [Suspect]
     Indication: ANAPLASTIC ASTROCYTOMA
     Dosage: 881 MG, Q3W, INTRAVENOUS
     Route: 042
     Dates: start: 20051102
  2. CPT-11 (IRINOTECAN HYDROCHLORIDE) [Concomitant]

REACTIONS (1)
  - MEDICATION ERROR [None]
